FAERS Safety Report 5600234-4 (Version None)
Quarter: 2008Q1

REPORT INFORMATION
  Report Type: 
  Country: None (occurrence: None)
  Receive Date: 20080123
  Receipt Date: 20080111
  Transmission Date: 20080703
  Serious: Yes (Hospitalization)
  Sender: FDA-Public Use
  Company Number: FR-WYE-G00874908

PATIENT
  Sex: Male
  Weight: 25 kg

DRUGS (2)
  1. ADVIL LIQUI-GELS [Suspect]
     Dosage: UNKNOWN
     Route: 048
     Dates: start: 20071009, end: 20071009
  2. DOLIPRANE [Concomitant]
     Dosage: UNKNOWN
     Dates: start: 20071001

REACTIONS (4)
  - CONDITION AGGRAVATED [None]
  - INFLUENZA [None]
  - LUNG DISORDER [None]
  - PNEUMOCOCCAL INFECTION [None]
